FAERS Safety Report 5383302-4 (Version None)
Quarter: 2007Q3

REPORT INFORMATION
  Report Type: 
  Country: None (occurrence: None)
  Receive Date: 20070710
  Receipt Date: 20070628
  Transmission Date: 20080115
  Serious: Yes (Other)
  Sender: FDA-Public Use
  Company Number: AU-SANOFI-SYNTHELABO-A01200704837

PATIENT
  Age: 67 Year
  Sex: Female

DRUGS (4)
  1. EFFEXOR XR [Concomitant]
     Indication: DRUG USE FOR UNKNOWN INDICATION
     Dosage: 150 MG
     Route: 048
  2. ZOLPIDEM TARTRATE [Suspect]
     Indication: DRUG USE FOR UNKNOWN INDICATION
     Dosage: 5 MG
     Route: 048
  3. ZOLPIDEM TARTRATE [Suspect]
     Dosage: UNK
     Route: 048
  4. ALCOHOL [Concomitant]
     Dosage: 2 GLASSES OF WINE OR BEER UNK
     Route: 048

REACTIONS (5)
  - ALCOHOL INTERACTION [None]
  - AMNESIA [None]
  - FALL [None]
  - HEAD INJURY [None]
  - SOMNAMBULISM [None]
